FAERS Safety Report 9240291 (Version 1)
Quarter: 2013Q2

REPORT INFORMATION
  Report Type: Spontaneous
  Country: US (occurrence: None)
  Receive Date: 20130418
  Receipt Date: 20130418
  Transmission Date: 20140414
  Serious: Yes (Other)
  Sender: FDA-Public Use
  Company Number: None

PATIENT
  Age: 74 Year
  Sex: Female
  Weight: 142.88 kg

DRUGS (1)
  1. CORTISONE [Suspect]
     Indication: OSTEOARTHRITIS
     Dosage: INJECTION INTO BOTH KNEES
     Dates: start: 20130403, end: 20130403

REACTIONS (10)
  - Blood pressure increased [None]
  - Headache [None]
  - Hyperhidrosis [None]
  - Heart rate irregular [None]
  - Dyspnoea [None]
  - Mood altered [None]
  - Condition aggravated [None]
  - Postmenopausal haemorrhage [None]
  - Muscle spasms [None]
  - Impaired work ability [None]
